FAERS Safety Report 11362527 (Version 2)
Quarter: 2015Q3

REPORT INFORMATION
  Report Type: Spontaneous
  Country: FR (occurrence: FR)
  Receive Date: 20150810
  Receipt Date: 20150921
  Transmission Date: 20151125
  Serious: Yes (Other)
  Sender: FDA-Public Use
  Company Number: FR-SA-2015SA117932

PATIENT
  Age: 71 Year
  Sex: Male

DRUGS (5)
  1. TRIATEC [Suspect]
     Active Substance: RAMIPRIL
     Indication: HYPERTENSION
     Route: 048
     Dates: start: 20150212, end: 20150313
  2. STILNOX [Concomitant]
     Active Substance: ZOLPIDEM TARTRATE
  3. XANAX [Concomitant]
     Active Substance: ALPRAZOLAM
  4. NORSET [Concomitant]
     Active Substance: MIRTAZAPINE
  5. LASILIX [Suspect]
     Active Substance: FUROSEMIDE
     Indication: HYPERTENSION
     Route: 048
     Dates: end: 20150313

REACTIONS (2)
  - Hyperkalaemia [Recovered/Resolved]
  - Acute kidney injury [Recovered/Resolved]

NARRATIVE: CASE EVENT DATE: 20150308
